FAERS Safety Report 6438829-0 (Version None)
Quarter: 2009Q4

REPORT INFORMATION
  Report Type: 
  Country: None (occurrence: None)
  Receive Date: 20091113
  Receipt Date: 20091110
  Transmission Date: 20100525
  Serious: Yes (Death)
  Sender: FDA-Public Use
  Company Number: DE-WYE-G04844109

PATIENT
  Age: 54 Year
  Sex: Male
  Weight: 60 kg

DRUGS (12)
  1. VENLAFAXINE HCL [Suspect]
     Indication: OBSESSIVE-COMPULSIVE PERSONALITY DISORDER
     Dosage: UP TO 225 MG PER DAY
     Route: 048
     Dates: start: 20090101, end: 20090401
  2. VENLAFAXINE HCL [Suspect]
     Indication: MAJOR DEPRESSION
     Route: 048
     Dates: start: 20090401, end: 20090623
  3. VENLAFAXINE HCL [Suspect]
     Route: 048
     Dates: start: 20090624, end: 20090725
  4. NITOMAN [Concomitant]
     Dosage: 200 MG PER DAY FROM AN UNKNOWN DATE UNTIL 25-JUL-2009
     Route: 048
  5. GASTROZEPIN [Concomitant]
     Route: 048
     Dates: start: 20090201, end: 20090725
  6. ACETYLSALICYLIC ACID [Concomitant]
     Dosage: 100 MG PER DAY FROM AN UNKNOWN DATE UNTIL 25-JUL-2009
     Route: 048
  7. QUILONUM - SLOW RELEASE [Concomitant]
     Indication: OBSESSIVE-COMPULSIVE PERSONALITY DISORDER
     Route: 048
     Dates: start: 20090201, end: 20090716
  8. QUILONUM - SLOW RELEASE [Concomitant]
     Indication: MAJOR DEPRESSION
  9. LEPONEX [Concomitant]
     Indication: OBSESSIVE-COMPULSIVE PERSONALITY DISORDER
     Route: 048
     Dates: start: 20000101, end: 20090623
  10. LEPONEX [Concomitant]
     Indication: MAJOR DEPRESSION
     Route: 048
     Dates: start: 20090624, end: 20090629
  11. LEPONEX [Concomitant]
     Route: 048
     Dates: start: 20090630, end: 20090701
  12. LEPONEX [Concomitant]
     Route: 048
     Dates: start: 20090702, end: 20090725

REACTIONS (2)
  - COMPLETED SUICIDE [None]
  - INTENTIONAL SELF-INJURY [None]
